FAERS Safety Report 21494383 (Version 1)
Quarter: 2022Q4

REPORT INFORMATION
  Report Type: Report from Study
  Country: US (occurrence: US)
  Receive Date: 20221021
  Receipt Date: 20221021
  Transmission Date: 20230113
  Serious: No
  Sender: FDA-Public Use
  Company Number: US-ABBVIE-4164813

PATIENT
  Sex: Female

DRUGS (1)
  1. VENCLEXTA [Suspect]
     Active Substance: VENETOCLAX
     Indication: Chronic myeloid leukaemia
     Dosage: TWO 10MG TABLETS WITH ONE 50MG TABLET (TOTAL 70MG) BY MOUTH DAILY ON DAYS 1 TO 7 ONCE EVERY 6 WEE...
     Route: 048
     Dates: start: 20220124

REACTIONS (1)
  - Weight gain poor [Not Recovered/Not Resolved]
